FAERS Safety Report 5733243-5 (Version None)
Quarter: 2008Q2

REPORT INFORMATION
  Report Type: 
  Country: None (occurrence: None)
  Receive Date: 20080509
  Receipt Date: 20080430
  Transmission Date: 20081010
  Serious: Yes (Congenital Anomaly)
  Sender: FDA-Public Use
  Company Number: GB-ABBOTT-07P-167-0415944-00

PATIENT
  Sex: Male

DRUGS (1)
  1. VALPROIC ACID [Suspect]
     Indication: DRUG EXPOSURE DURING PREGNANCY
     Route: 064

REACTIONS (17)
  - AGGRESSION [None]
  - ASOCIAL BEHAVIOUR [None]
  - AUTISM [None]
  - COMMUNICATION DISORDER [None]
  - CONGENITAL FOOT MALFORMATION [None]
  - CONGENITAL NOSE MALFORMATION [None]
  - DEVELOPMENTAL DELAY [None]
  - DISTURBANCE IN ATTENTION [None]
  - DYSMORPHISM [None]
  - DYSPHASIA [None]
  - FOETAL ANTICONVULSANT SYNDROME [None]
  - LIGAMENT LAXITY [None]
  - LIP DISORDER [None]
  - OTITIS MEDIA [None]
  - SPEECH DISORDER [None]
  - SPEECH DISORDER DEVELOPMENTAL [None]
  - UNEVALUABLE EVENT [None]
